FAERS Safety Report 9142750 (Version 1)
Quarter: 2013Q1

REPORT INFORMATION
  Report Type: Spontaneous
  Country: US (occurrence: US)
  Receive Date: 20130306
  Receipt Date: 20130306
  Transmission Date: 20140127
  Serious: No
  Sender: FDA-Public Use
  Company Number: US-ENDO PHARMACEUTICALS INC.-OPER20120124

PATIENT
  Sex: Female

DRUGS (4)
  1. OPANA [Suspect]
     Indication: BREAKTHROUGH PAIN
     Route: 048
     Dates: start: 2012
  2. OPANA [Suspect]
     Indication: TRIGEMINAL NERVE DISORDER
  3. OPANA ER 5MG [Concomitant]
     Indication: PAIN
     Route: 048
     Dates: start: 2012
  4. OPANA ER 5MG [Concomitant]
     Indication: TRIGEMINAL NERVE DISORDER

REACTIONS (2)
  - Inappropriate schedule of drug administration [Unknown]
  - Drug ineffective [Unknown]
